FAERS Safety Report 5016062-7 (Version None)
Quarter: 2006Q2

REPORT INFORMATION
  Report Type: 
  Country: None (occurrence: None)
  Receive Date: 20060531
  Receipt Date: 20060531
  Transmission Date: 20061013
  Serious: Yes (Other)
  Sender: FDA-Public Use
  Company Number: None

PATIENT
  Age: 60 Year
  Sex: Female
  Weight: 68.0396 kg

DRUGS (2)
  1. AMBIEN CR [Suspect]
     Indication: INSOMNIA
     Dosage: 1 NIGHTLY PO
     Route: 048
     Dates: start: 20060511, end: 20060528
  2. AMBIEN CR [Suspect]
     Indication: SLEEP WALKING
     Dosage: 1 NIGHTLY PO
     Route: 048
     Dates: start: 20060511, end: 20060528

REACTIONS (6)
  - DRUG INEFFECTIVE [None]
  - DRY MOUTH [None]
  - NEUROLOGICAL SYMPTOM [None]
  - PARAESTHESIA [None]
  - POLLAKIURIA [None]
  - TREMOR [None]
